FAERS Safety Report 8779363 (Version 1)
Quarter: 2012Q4

REPORT INFORMATION
  Report Type: Report from Study
  Country: DK (occurrence: DK)
  Receive Date: 20120911
  Receipt Date: 20120911
  Transmission Date: 20130627
  Serious: Yes (Hospitalization)
  Sender: FDA-Public Use
  Company Number: DK-AMGEN-QUU423404

PATIENT
  Age: 73 Year
  Sex: Female
  Weight: 67.5 kg

DRUGS (5)
  1. ETANERCEPT [Suspect]
     Indication: RHEUMATOID ARTHRITIS
     Dosage: 50 mg, qwk
     Route: 058
     Dates: start: 20091008, end: 20101028
  2. METHOTREXATE [Concomitant]
     Dosage: UNK
     Route: 065
     Dates: start: 20080212
  3. FOLIC ACID [Concomitant]
     Dosage: UNK
     Route: 065
     Dates: start: 20040614
  4. PARACETAMOL [Concomitant]
     Dosage: UNK UNK, UNK
     Route: 048
     Dates: start: 20100509, end: 20100628
  5. ACETYLSALICYLIC ACID/PARACETAMOL [Concomitant]
     Dosage: UNK
     Route: 048
     Dates: start: 20100509, end: 20100628

REACTIONS (1)
  - Pyrexia [Recovered/Resolved]
